FAERS Safety Report 4624186-9 (Version None)
Quarter: 2005Q1

REPORT INFORMATION
  Report Type: 
  Country: None (occurrence: None)
  Receive Date: 20050331
  Receipt Date: 20050324
  Transmission Date: 20050727
  Serious: Yes (Death)
  Sender: FDA-Public Use
  Company Number: DE-GLAXOSMITHKLINE-D0046236A

PATIENT
  Age: 47 Year
  Sex: Male
  Weight: 50 kg

DRUGS (30)
  1. EPIVIR [Suspect]
     Dosage: 150MG PER DAY
     Route: 050
     Dates: start: 20050107, end: 20050119
  2. MUCOSOLVAN [Concomitant]
     Route: 065
  3. ANTIBIOTIC (UNSPECIFIED) [Concomitant]
     Route: 065
  4. ANTIMYCOTIC (UNSPECIFIED) [Concomitant]
     Route: 065
  5. HEPSERA [Concomitant]
     Route: 065
  6. NOREPINEPHRINE BITARTRATE [Concomitant]
     Route: 065
  7. FUROSEMIDE [Concomitant]
     Route: 065
  8. TOREM [Concomitant]
     Route: 065
  9. PANTOPRAZOLE SODIUM [Concomitant]
     Route: 065
  10. KONAKION [Concomitant]
     Route: 065
  11. VOLUVEN [Concomitant]
     Route: 065
  12. FENTANYL [Concomitant]
     Route: 065
  13. MIDAZOLAM HCL [Concomitant]
     Route: 065
  14. KETANEST [Concomitant]
     Route: 065
  15. MORPHINE [Concomitant]
     Route: 065
  16. INFUSION [Concomitant]
     Route: 065
  17. TPN [Concomitant]
     Route: 065
  18. ENTERAL NUTRITION [Concomitant]
     Route: 065
  19. FIBRINOGEN [Concomitant]
     Dosage: 3G CUMULATIVE DOSE
     Route: 065
  20. BIFITERAL [Concomitant]
     Route: 065
  21. ULCOGANT [Concomitant]
     Route: 065
  22. ARTIFICIAL MECHANICAL VENTILATION [Concomitant]
     Route: 065
  23. RED BLOOD CELLS [Concomitant]
     Dosage: 50UNIT CUMULATIVE DOSE
     Route: 065
  24. CONCENTRATED GLYCERIN FRUCTOSE [Concomitant]
     Dosage: 99UNIT CUMULATIVE DOSE
     Route: 065
  25. THROMBOCYTE CONCENTRATES [Concomitant]
     Dosage: 12UNIT CUMULATIVE DOSE
     Route: 065
  26. ANTITHROMBIN-3 [Concomitant]
     Dosage: 4000IU CUMULATIVE DOSE
     Route: 065
  27. PROTHROMBIN COMPLEX [Concomitant]
     Dosage: 5000IU CUMULATIVE DOSE
     Route: 065
  28. FACTOR XIII [Concomitant]
     Indication: FACTOR XIII DEFICIENCY
     Dosage: 7500IU CUMULATIVE DOSE
     Route: 065
  29. HEMOFILTRATION [Concomitant]
     Route: 065
     Dates: start: 20041230, end: 20050104
  30. HEMOFILTRATION [Concomitant]
     Route: 065
     Dates: start: 20050121, end: 20050125

REACTIONS (3)
  - ANAEMIA [None]
  - LACTIC ACIDOSIS [None]
  - THROMBOCYTOPENIA [None]
